FAERS Safety Report 7668348-5 (Version None)
Quarter: 2011Q3

REPORT INFORMATION
  Report Type: 
  Country: None (occurrence: None)
  Receive Date: 20110803
  Receipt Date: 20110722
  Transmission Date: 20111222
  Serious: Yes (Death, Hospitalization, Other)
  Sender: FDA-Public Use
  Company Number: 2011P1006503

PATIENT
  Age: 76 Year
  Sex: Male
  Weight: 95 kg

DRUGS (15)
  1. MORPHINE [Concomitant]
  2. LASIX [Concomitant]
  3. METOPROLOL TARTRATE [Concomitant]
  4. LOVENOX [Concomitant]
  5. WARFARIN SODIUM [Suspect]
     Indication: ANGIOPATHY
     Dosage: QD PO
     Route: 048
     Dates: start: 20110422, end: 20110424
  6. PREDNISONE [Concomitant]
  7. MILK OF MAGNESIA TAB [Concomitant]
  8. ASPIRIN [Concomitant]
  9. AMLODIPINE [Concomitant]
  10. CONTRAST MEDIA (NO PREF. NAME) [Suspect]
     Indication: AORTIC ANEURYSM REPAIR
     Dosage: IV
     Route: 042
     Dates: start: 20110420, end: 20110420
  11. MOMETASONE INHALER [Concomitant]
  12. WARFARIN SODIUM [Suspect]
     Indication: ANGIOPATHY
     Dosage: QD, PO
     Route: 048
     Dates: start: 20110502, end: 20110504
  13. VALIUM [Concomitant]
  14. PRAVASTATIN [Concomitant]
  15. WARFARIN SODIUM [Suspect]
     Indication: ANGIOPATHY
     Dosage: QD PO
     Route: 048
     Dates: start: 20110430, end: 20110501

REACTIONS (15)
  - INTERNATIONAL NORMALISED RATIO INCREASED [None]
  - HAEMATOCRIT DECREASED [None]
  - RESPIRATORY DISTRESS [None]
  - WEANING FAILURE [None]
  - BRADYCARDIA [None]
  - CONTRAST MEDIA ALLERGY [None]
  - CONDITION AGGRAVATED [None]
  - HAEMORRHAGE [None]
  - RENAL IMPAIRMENT [None]
  - CARDIAC ARREST [None]
  - HAEMOGLOBIN DECREASED [None]
  - INTERNATIONAL NORMALISED RATIO DECREASED [None]
  - BRONCHOSPASM [None]
  - PNEUMONIA ASPIRATION [None]
  - PLATELET COUNT DECREASED [None]
